FAERS Safety Report 4928596-1 (Version None)
Quarter: 2006Q1

REPORT INFORMATION
  Report Type: 
  Country: None (occurrence: None)
  Receive Date: 20060301
  Receipt Date: 20060119
  Transmission Date: 20060701
  Serious: Yes (Life-Threatening)
  Sender: FDA-Public Use
  Company Number: 2006AP00384

PATIENT
  Age: 27989 Day
  Sex: Male
  Weight: 49 kg

DRUGS (5)
  1. IRESSA [Suspect]
     Indication: LARGE CELL CARCINOMA OF THE RESPIRATORY TRACT STAGE UNSPECIFIED
     Route: 048
     Dates: start: 20051213, end: 20051223
  2. SELBEX [Concomitant]
     Indication: GASTRITIS
     Route: 048
     Dates: start: 20010101
  3. SIGMART [Concomitant]
     Indication: ANGINA PECTORIS
     Route: 048
     Dates: start: 20010101
  4. PREDONINE [Concomitant]
     Indication: MYELODYSPLASTIC SYNDROME
     Route: 048
     Dates: start: 20010101
  5. MITOMYCIN [Concomitant]
     Dates: start: 20051124

REACTIONS (5)
  - BLOOD PRESSURE DECREASED [None]
  - LUNG DISORDER [None]
  - PNEUMONIA [None]
  - RASH [None]
  - SEPTIC SHOCK [None]
